FAERS Safety Report 7510705-1 (Version None)
Quarter: 2011Q2

REPORT INFORMATION
  Report Type: 
  Country: None (occurrence: None)
  Receive Date: 20110530
  Receipt Date: 20110516
  Transmission Date: 20111010
  Serious: Yes (Hospitalization)
  Sender: FDA-Public Use
  Company Number: US-AMGEN-KDC400360

PATIENT
  Age: 44 Year
  Sex: Female
  Weight: 91 kg

DRUGS (19)
  1. HYDROXYZINE [Concomitant]
     Dosage: 50 MG, BID
     Route: 048
  2. GABAPENTIN [Concomitant]
     Dosage: 100 MG, TID
  3. PLACEBO [Suspect]
     Indication: HYPERPARATHYROIDISM SECONDARY
     Dosage: UNK UNK, QD
     Route: 048
     Dates: start: 20070822
  4. REGLAN [Concomitant]
     Dosage: 5 MG, TID
     Route: 048
  5. PRAVACHOL [Concomitant]
     Dosage: 80 MG, QD
     Route: 048
     Dates: start: 20100127
  6. LIPITOR [Concomitant]
     Dosage: 5 MG, QD
     Route: 048
  7. ACETAMINOPHEN [Concomitant]
     Dosage: 650 MG, PRN
     Route: 048
     Dates: start: 20100128
  8. LYRICA [Concomitant]
     Dosage: 100 MG, PRN
     Route: 048
  9. CLONIDINE [Concomitant]
     Dosage: .2 MG, QD
     Route: 048
  10. LANTUS [Concomitant]
     Dosage: 60 IU, QD
     Route: 058
  11. DARVOCET-N 50 [Concomitant]
     Dosage: UNK UNK, PRN
     Route: 048
  12. SENSIPAR [Concomitant]
     Dosage: 90 MG, QD
     Route: 048
  13. DIOVAN [Concomitant]
     Dosage: 160 MG, BID
     Route: 048
  14. CINACALCET HYDROCHLORIDE [Suspect]
     Indication: HYPERPARATHYROIDISM SECONDARY
     Dosage: UNK UNK, QD
     Route: 048
     Dates: start: 20070822
  15. PRILOSEC [Concomitant]
     Dosage: 20 MG, BID
     Route: 048
  16. MULTI-VITAMINS [Concomitant]
     Dosage: UNK UNK, QD
     Route: 048
  17. CALCIUM CARBONATE [Concomitant]
     Dosage: 650 MG, TID
     Route: 048
  18. RENAGEL [Concomitant]
     Dosage: 800 MG, TID
     Route: 048
  19. METOPROLOL TARTRATE [Concomitant]
     Dosage: 50 MG, BID
     Route: 048

REACTIONS (2)
  - SEPSIS [None]
  - BRAIN STEM INFARCTION [None]
